FAERS Safety Report 6371243-5 (Version None)
Quarter: 2009Q3

REPORT INFORMATION
  Report Type: 
  Country: None (occurrence: None)
  Receive Date: 20090923
  Receipt Date: 20070330
  Transmission Date: 20100115
  Serious: No
  Sender: FDA-Public Use
  Company Number: US-ASTRAZENECA-2007UW01407

PATIENT
  Age: 36 Year
  Sex: Female
  Weight: 112 kg

DRUGS (20)
  1. SEROQUEL [Suspect]
     Indication: MAJOR DEPRESSION
     Dosage: 100 MG-800 MG
     Route: 048
     Dates: start: 20000906
  2. SEROQUEL [Suspect]
     Route: 048
     Dates: start: 20001001, end: 20040401
  3. SEROQUEL [Suspect]
     Route: 048
  4. SEROQUEL [Suspect]
     Route: 048
  5. RISPERDAL [Suspect]
     Indication: DEPRESSION
     Dates: start: 19970601
  6. ZYPREXA [Suspect]
     Indication: DEPRESSION
     Dates: start: 19970101, end: 20031101
  7. LEXAPRO [Concomitant]
  8. EFFEXOR XR [Concomitant]
  9. CEFADROXIL [Concomitant]
  10. TOPAMAX [Concomitant]
  11. PRILOSEC [Concomitant]
  12. DESIPRAMINE [Concomitant]
  13. HYDROCODONE [Concomitant]
  14. BUSPIRONE HCL [Concomitant]
  15. CHLORHEXIDINE GLUCONATE [Concomitant]
  16. METFORMIN HCL [Concomitant]
  17. LOVASTATIN [Concomitant]
  18. GEMFIBROZIL [Concomitant]
  19. DIFLUNISAL [Concomitant]
  20. PINDOLOL [Concomitant]

REACTIONS (9)
  - BLOOD TRIGLYCERIDES INCREASED [None]
  - DIABETES MELLITUS [None]
  - HYPERCHOLESTEROLAEMIA [None]
  - HYPERGLYCAEMIA [None]
  - INFECTIOUS MONONUCLEOSIS [None]
  - MIGRAINE [None]
  - OTITIS MEDIA [None]
  - SEBORRHOEA [None]
  - VIRAL INFECTION [None]
